FAERS Safety Report 5850985-1 (Version None)
Quarter: 2008Q3

REPORT INFORMATION
  Report Type: 
  Country: None (occurrence: None)
  Receive Date: 20080818
  Receipt Date: 20080801
  Transmission Date: 20090109
  Serious: Yes (Hospitalization)
  Sender: FDA-Public Use
  Company Number: 2008US002048

PATIENT
  Age: 39 Year
  Weight: 100 kg

DRUGS (7)
  1. AMBISOME [Suspect]
     Indication: DRUG USE FOR UNKNOWN INDICATION
     Dosage: 100 MG, IV NOS
     Route: 042
     Dates: start: 20080613
  2. ASPARAGINASE(ASPARAGINASE) [Suspect]
     Indication: ACUTE LEUKAEMIA
     Dates: start: 20080628
  3. ACYCLOVIR [Concomitant]
  4. ALLOPURINOL [Concomitant]
  5. CIPROFLOXACIN [Concomitant]
  6. DAUNORUBICIN HCL [Concomitant]
  7. VINCRISTINE [Concomitant]

REACTIONS (2)
  - JAUNDICE [None]
  - LIVER FUNCTION TEST ABNORMAL [None]
